FAERS Safety Report 7400327-5 (Version None)
Quarter: 2011Q2

REPORT INFORMATION
  Report Type: 
  Country: None (occurrence: None)
  Receive Date: 20110405
  Receipt Date: 20110405
  Transmission Date: 20111010
  Serious: Yes (Hospitalization)
  Sender: FDA-Public Use
  Company Number: None

PATIENT
  Sex: Female
  Weight: 204 kg

DRUGS (1)
  1. VANCOMYCIN [Suspect]
     Indication: CELLULITIS
     Dosage: 1500 MG Q 48HR IV ONLY 4 DOSES
     Route: 042
     Dates: start: 20110319, end: 20110325

REACTIONS (2)
  - HAEMODIALYSIS [None]
  - RENAL FAILURE ACUTE [None]
